FAERS Safety Report 10408156 (Version 1)
Quarter: 2014Q3

REPORT INFORMATION
  Report Type: Spontaneous
  Country: US (occurrence: US)
  Receive Date: 20140826
  Receipt Date: 20140826
  Transmission Date: 20150326
  Serious: No
  Sender: FDA-Public Use
  Company Number: US-009507513-1408USA013509

PATIENT
  Sex: Female

DRUGS (1)
  1. NUVARING [Suspect]
     Active Substance: ETHINYL ESTRADIOL\ETONOGESTREL
     Dosage: .015/.12MG, THREE WEEKS IN AND ONE WEEK OUT
     Route: 067

REACTIONS (4)
  - Inappropriate schedule of drug administration [Unknown]
  - Device expulsion [Unknown]
  - No adverse event [Unknown]
  - Product quality issue [Unknown]
